FAERS Safety Report 16074121 (Version 1)
Quarter: 2019Q1

REPORT INFORMATION
  Report Type: Report from Study
  Country: IT (occurrence: IT)
  Receive Date: 20190314
  Receipt Date: 20190314
  Transmission Date: 20190418
  Serious: Yes (Congenital Anomaly, Other)
  Sender: FDA-Public Use
  Company Number: IT-TEVA-2019-IT-1023254

PATIENT
  Age: 72 Year
  Sex: Male

DRUGS (1)
  1. OXALIPLATIN. [Suspect]
     Active Substance: OXALIPLATIN
     Indication: COLORECTAL CANCER
     Dates: start: 20181123, end: 20190130

REACTIONS (2)
  - Paraesthesia [Recovered/Resolved]
  - Macroglossia [Recovered/Resolved]

NARRATIVE: CASE EVENT DATE: 20190130
